FAERS Safety Report 7363280-9 (Version None)
Quarter: 2011Q1

REPORT INFORMATION
  Report Type: 
  Country: None (occurrence: None)
  Receive Date: 20110321
  Receipt Date: 20110308
  Transmission Date: 20110831
  Serious: Yes (Hospitalization)
  Sender: FDA-Public Use
  Company Number: US-JNJFOC-20100802105

PATIENT
  Sex: Female
  Weight: 41.2 kg

DRUGS (7)
  1. MESALAMINE [Concomitant]
  2. INFLIXIMAB [Suspect]
     Indication: INFLAMMATION
     Route: 042
  3. INFLIXIMAB [Suspect]
     Route: 042
  4. VANCOMYCIN [Concomitant]
  5. BACTRIM [Concomitant]
  6. PREDNISONE [Concomitant]
  7. CYCLOSPORINE [Concomitant]

REACTIONS (2)
  - CROHN'S DISEASE [None]
  - CONDITION AGGRAVATED [None]
